FAERS Safety Report 9089903 (Version 1)
Quarter: 2013Q1

REPORT INFORMATION
  Report Type: Spontaneous
  Country: US (occurrence: US)
  Receive Date: 20130201
  Receipt Date: 20130201
  Transmission Date: 20140127
  Serious: No
  Sender: FDA-Public Use
  Company Number: US-ABBOTT-12P-163-1015178-00

PATIENT
  Sex: 0

DRUGS (3)
  1. HUMIRA [Suspect]
     Indication: PRODUCT USED FOR UNKNOWN INDICATION
     Route: 058
  2. PREDNISONE [Concomitant]
     Dosage: MORNING OF INJECTION
  3. BENADRYL [Concomitant]
     Dosage: 20 MINUTES BEFORE INJECTION

REACTIONS (6)
  - Injection site pain [Unknown]
  - Injection site pain [Unknown]
  - Injection site erythema [Unknown]
  - Injection site swelling [Unknown]
  - Pain in extremity [Unknown]
  - Contusion [Unknown]
